FAERS Safety Report 24987625 (Version 1)
Quarter: 2025Q1

REPORT INFORMATION
  Report Type: Report from Study
  Country: JP (occurrence: JP)
  Receive Date: 20250219
  Receipt Date: 20250219
  Transmission Date: 20250408
  Serious: Yes (Death)
  Sender: SHIONOGI
  Company Number: JP-shionogi-202500001877

PATIENT
  Age: 91 Year
  Sex: Female
  Weight: 52 kg

DRUGS (5)
  1. CEFIDEROCOL [Suspect]
     Active Substance: CEFIDEROCOL
     Indication: Pneumonia
     Route: 041
     Dates: start: 20241029, end: 20241031
  2. MEROPENEM [Concomitant]
     Active Substance: MEROPENEM
     Indication: Pneumonia
     Route: 065
     Dates: start: 20241018, end: 20241028
  3. REPLAS 3 [Concomitant]
     Indication: Pneumonia
     Route: 065
     Dates: start: 20241022, end: 20241030
  4. FRUCTLACT [Concomitant]
     Indication: Pneumonia
     Route: 065
     Dates: start: 20241022, end: 20241030
  5. DOPAMINE HYDROCHLORIDE [Concomitant]
     Active Substance: DOPAMINE HYDROCHLORIDE
     Indication: Pneumonia
     Route: 065
     Dates: start: 20241022, end: 20241030

REACTIONS (1)
  - Pneumonia [Fatal]

NARRATIVE: CASE EVENT DATE: 20241031
